FAERS Safety Report 11777647 (Version 2)
Quarter: 2015Q4

REPORT INFORMATION
  Report Type: Report from Study
  Country: FR (occurrence: FR)
  Receive Date: 20151125
  Receipt Date: 20151202
  Transmission Date: 20160304
  Serious: Yes (Hospitalization)
  Sender: FDA-Public Use
  Company Number: PHHY2015FR122414

PATIENT
  Age: 15 Year
  Sex: Female
  Weight: 43.5 kg

DRUGS (14)
  1. CGP 57148B [Suspect]
     Active Substance: IMATINIB MESYLATE
     Indication: ACUTE LYMPHOCYTIC LEUKAEMIA
     Dosage: 444 MG, UNK
     Route: 048
     Dates: start: 20150415
  2. ENDOXAN [Concomitant]
     Active Substance: CYCLOPHOSPHAMIDE
     Indication: ACUTE LYMPHOCYTIC LEUKAEMIA
     Dosage: 300 MG, QD
     Route: 042
     Dates: start: 20150416, end: 20150418
  3. ARACYTIN [Concomitant]
     Active Substance: CYTARABINE
     Indication: ACUTE LYMPHOCYTIC LEUKAEMIA
     Dosage: UNK
     Route: 037
     Dates: start: 20150527, end: 20150528
  4. MYLAN DEXAMETHASONE [Concomitant]
     Active Substance: DEXAMETHASONE SODIUM PHOSPHATE
     Indication: ACUTE LYMPHOCYTIC LEUKAEMIA
     Dosage: 9.33 MG, UNK
     Route: 048
     Dates: start: 20150527, end: 20150531
  5. ETOPOSID TEVA [Concomitant]
     Indication: ACUTE LYMPHOCYTIC LEUKAEMIA
     Dosage: 140 MG, UNK
     Route: 042
     Dates: start: 20150529, end: 20150529
  6. CYTARABINE. [Concomitant]
     Active Substance: CYTARABINE
     Indication: PRODUCT USED FOR UNKNOWN INDICATION
     Route: 065
  7. HYDROCORTISONE UPJOHN [Concomitant]
     Active Substance: HYDROCORTISONE
     Indication: ACUTE LYMPHOCYTIC LEUKAEMIA
     Dosage: 15 MG, ONCE/SINGLE
     Route: 037
     Dates: start: 20150531, end: 20150531
  8. METHOTREXATE (METHOTREXATE SODIUM) [Concomitant]
     Active Substance: METHOTREXATE SODIUM
     Indication: ACUTE LYMPHOCYTIC LEUKAEMIA
     Dosage: 3350 MG, ONCE/SINGLE
     Route: 042
     Dates: start: 20150415, end: 20150415
  9. MESNA. [Concomitant]
     Active Substance: MESNA
     Indication: ACUTE LYMPHOCYTIC LEUKAEMIA
     Dosage: 103.6 MG, QD
     Route: 042
     Dates: start: 20150416, end: 20150418
  10. CGP 57148B [Suspect]
     Active Substance: IMATINIB MESYLATE
     Dosage: 420 MG, UNK
     Route: 048
     Dates: start: 20150527
  11. METHOTREXATE BIODIM [Concomitant]
     Active Substance: METHOTREXATE
     Indication: ACUTE LYMPHOCYTIC LEUKAEMIA
     Dosage: UNK
     Route: 065
     Dates: start: 20150531, end: 20150531
  12. ONCASPAR [Concomitant]
     Active Substance: PEGASPARGASE
     Indication: ACUTE LYMPHOCYTIC LEUKAEMIA
     Dosage: 1400 IU, UNK
     Route: 042
     Dates: start: 20150531, end: 20150531
  13. VINCRISTINE HOSPIRA [Concomitant]
     Active Substance: VINCRISTINE
     Indication: ACUTE LYMPHOCYTIC LEUKAEMIA
     Dosage: 4 MG, QD
     Route: 042
     Dates: start: 20150415, end: 20150420
  14. ARACYTIN [Concomitant]
     Active Substance: CYTARABINE
     Dosage: 30 MG, ONCE/SINGLE
     Route: 037
     Dates: start: 20150531, end: 20150531

REACTIONS (2)
  - Febrile bone marrow aplasia [Recovered/Resolved]
  - Febrile bone marrow aplasia [Recovered/Resolved]

NARRATIVE: CASE EVENT DATE: 20150426
